FAERS Safety Report 9135661 (Version 2)
Quarter: 2013Q1

REPORT INFORMATION
  Report Type: Spontaneous
  Country: JP (occurrence: JP)
  Receive Date: 20130304
  Receipt Date: 20130313
  Transmission Date: 20140127
  Serious: Yes (Other)
  Sender: FDA-Public Use
  Company Number: PHHY2013JP020675

PATIENT
  Age: 78 Year
  Sex: Female

DRUGS (2)
  1. ZOLEDRONIC ACID [Suspect]
     Indication: METASTASES TO BONE
     Dosage: 4 MG, ONCE IN A MONTH
     Route: 041
     Dates: start: 2009
  2. CHEMOTHERAPEUTICS [Concomitant]

REACTIONS (5)
  - Femur fracture [Unknown]
  - Fall [Unknown]
  - Abasia [Unknown]
  - Bone disorder [Unknown]
  - Pain in extremity [Unknown]
